FAERS Safety Report 5870294-4 (Version None)
Quarter: 2008Q3

REPORT INFORMATION
  Report Type: 
  Country: None (occurrence: None)
  Receive Date: 20080904
  Receipt Date: 20070823
  Transmission Date: 20090109
  Serious: No
  Sender: FDA-Public Use
  Company Number: US-BRISTOL-MYERS SQUIBB COMPANY-13887559

PATIENT
  Sex: Male

DRUGS (1)
  1. DEFINITY [Suspect]
     Dates: start: 20070823, end: 20070823

REACTIONS (2)
  - BACK PAIN [None]
  - FLUSHING [None]
